FAERS Safety Report 5327033-5 (Version None)
Quarter: 2007Q2

REPORT INFORMATION
  Report Type: 
  Country: None (occurrence: None)
  Receive Date: 20070517
  Receipt Date: 20070510
  Transmission Date: 20071010
  Serious: Yes (Other)
  Sender: FDA-Public Use
  Company Number: PHBS2007JP07065

PATIENT
  Sex: Female

DRUGS (4)
  1. VOLTAREN [Suspect]
     Indication: HEADACHE
     Dosage: 75 MG/DAY
     Route: 048
  2. ADEFURONIC [Suspect]
     Route: 048
  3. DEPAKENE [Concomitant]
     Dosage: 1600 MG/DAY
     Route: 048
  4. CLOBAZAM [Concomitant]
     Dosage: 20 MG/DAY
     Route: 048

REACTIONS (4)
  - DEPRESSED LEVEL OF CONSCIOUSNESS [None]
  - DIZZINESS [None]
  - FEELING HOT [None]
  - NAUSEA [None]
